FAERS Safety Report 8960983 (Version 3)
Quarter: 2012Q4

REPORT INFORMATION
  Report Type: 
  Country: JP (occurrence: JP)
  Receive Date: 20121212
  Receipt Date: 20121226
  Transmission Date: 20130627
  Serious: Yes (Hospitalization, Disabling)
  Sender: FDA-Public Use
  Company Number: JP-MERCK-1210JPN004972

PATIENT
  Age: 81 Year
  Sex: Female

DRUGS (18)
  1. BONALON [Suspect]
     Indication: OSTEOPOROSIS
     Dosage: 5 mg daily
     Route: 048
     Dates: start: 200404
  2. BONALON [Suspect]
     Indication: OSTEOPOROSIS
     Dosage: UNK
     Route: 048
     Dates: end: 201105
  3. RHEUMATREX [Suspect]
     Indication: RHEUMATIC DISORDER
     Dosage: UNK
     Dates: end: 20110722
  4. PREDONINE [Suspect]
     Indication: RHEUMATIC DISORDER
     Dosage: 2.5 mg daily
     Route: 048
  5. ONEALFA [Concomitant]
     Indication: OSTEOPOROSIS
     Dosage: 1 microgram/day
  6. EVISTA [Concomitant]
     Indication: OSTEOPOROSIS
     Dosage: 60 milligram/day
     Route: 048
     Dates: start: 20110617
  7. MICARDIS [Concomitant]
     Indication: HYPERTENSION
     Dosage: 20 milligram/day
     Route: 048
  8. LIPOVAS TABLETS 5 [Concomitant]
     Indication: DYSLIPIDAEMIA
     Dosage: 5 milligram/day
     Route: 048
  9. GASTER [Concomitant]
     Indication: GASTRITIS
     Dosage: 20 milligram/day
     Route: 048
  10. MARZULENE-S [Concomitant]
     Indication: GASTRITIS
     Dosage: 2 gram/day
     Route: 048
  11. OSTELUC [Concomitant]
     Dosage: 100 milligram/day
     Route: 048
  12. HALCION [Concomitant]
     Indication: INSOMNIA
     Route: 048
  13. UREPEARL [Concomitant]
  14. SANCOBA [Concomitant]
     Route: 031
  15. MOHRUS [Concomitant]
  16. LOXONIN [Concomitant]
  17. YAKUBAN [Concomitant]
  18. PURSENNID (SENNOSIDES) [Concomitant]
     Indication: CONSTIPATION
     Route: 048

REACTIONS (2)
  - Osteomyelitis [Recovering/Resolving]
  - Osteomyelitis [Not Recovered/Not Resolved]
